FAERS Safety Report 13278226 (Version 1)
Quarter: 2017Q1

REPORT INFORMATION
  Report Type: Spontaneous
  Country: US (occurrence: US)
  Receive Date: 20170228
  Receipt Date: 20170228
  Transmission Date: 20170428
  Serious: No
  Sender: FDA-Public Use
  Company Number: US-BIOGEN-2017BI00361754

PATIENT
  Sex: Female

DRUGS (1)
  1. TECFIDERA [Suspect]
     Active Substance: DIMETHYL FUMARATE
     Indication: MULTIPLE SCLEROSIS
     Route: 065
     Dates: start: 20160405

REACTIONS (6)
  - Feeling abnormal [Unknown]
  - Pharyngeal oedema [Unknown]
  - Generalised erythema [Recovered/Resolved]
  - Dyspnoea [Unknown]
  - Flushing [Unknown]
  - Feeling hot [Recovered/Resolved]
